FAERS Safety Report 6523966-2 (Version None)
Quarter: 2009Q4

REPORT INFORMATION
  Report Type: 
  Country: None (occurrence: None)
  Receive Date: 20091231
  Receipt Date: 20091223
  Transmission Date: 20100525
  Serious: Yes (Hospitalization)
  Sender: FDA-Public Use
  Company Number: US-ELI_LILLY_AND_COMPANY-US200912005454

PATIENT
  Age: 27 Year
  Sex: Female
  Weight: 59 kg

DRUGS (3)
  1. GEMCITABINE HCL [Suspect]
     Indication: BREAST CANCER
     Dosage: 3300 MG, OTHER
     Route: 042
     Dates: start: 20091202
  2. BEVACIZUMAB [Suspect]
     Indication: BREAST CANCER
     Dosage: 885 MG, OTHER
     Route: 042
     Dates: start: 20091202
  3. PACLITAXEL, ALBUMIN-BOUND [Suspect]
     Indication: BREAST CANCER
     Dosage: 400 MG, OTHER
     Route: 042
     Dates: start: 20091202

REACTIONS (4)
  - NEUTROPHIL COUNT DECREASED [None]
  - PLATELET COUNT DECREASED [None]
  - TOOTH INFECTION [None]
  - WHITE BLOOD CELL COUNT DECREASED [None]
